FAERS Safety Report 23589937 (Version 1)
Quarter: 2024Q1

REPORT INFORMATION
  Report Type: Spontaneous
  Country: AU (occurrence: AU)
  Receive Date: 20240304
  Receipt Date: 20240304
  Transmission Date: 20240410
  Serious: Yes (Other)
  Sender: FDA-Public Use
  Company Number: AU-NOVOPROD-1181223

PATIENT
  Age: 37 Year
  Sex: Female

DRUGS (1)
  1. OZEMPIC [Suspect]
     Active Substance: SEMAGLUTIDE
     Indication: Product used for unknown indication
     Dosage: UNK

REACTIONS (6)
  - Biliary obstruction [Unknown]
  - Biliary dilatation [Unknown]
  - Biliary tract disorder [Unknown]
  - Abdominal pain [Unknown]
  - Cholelithiasis [Unknown]
  - Pancreatitis [Unknown]
